FAERS Safety Report 25045149 (Version 1)
Quarter: 2025Q1

REPORT INFORMATION
  Report Type: Spontaneous
  Country: US (occurrence: US)
  Receive Date: 20250306
  Receipt Date: 20250306
  Transmission Date: 20250409
  Serious: Yes (Hospitalization, Other)
  Sender: CSL BEHRING
  Company Number: US-BEH-2025197784

PATIENT
  Age: 63 Year
  Sex: Female

DRUGS (10)
  1. HIZENTRA [Suspect]
     Active Substance: HUMAN IMMUNOGLOBULIN G
     Indication: Secondary immunodeficiency
     Route: 058
  2. AZITHROMYCIN [Concomitant]
     Active Substance: AZITHROMYCIN
  3. ALBUTEROL [Concomitant]
     Active Substance: ALBUTEROL
  4. ATORVASTATIN [Concomitant]
     Active Substance: ATORVASTATIN
     Indication: Blood cholesterol
  5. VITAMIN D [Concomitant]
     Active Substance: VITAMIN D NOS
  6. Tryptoline [Concomitant]
     Indication: Rectal prolapse
  7. Tryptoline [Concomitant]
     Indication: Cystocele
  8. Tryptoline [Concomitant]
     Indication: Constipation
  9. Tryptoline [Concomitant]
     Indication: Injury
  10. IBUPROFEN [Concomitant]
     Active Substance: IBUPROFEN

REACTIONS (24)
  - Sepsis [Unknown]
  - COVID-19 [Unknown]
  - Pneumonia [Unknown]
  - Headache [Unknown]
  - Sinusitis [Not Recovered/Not Resolved]
  - Chromaturia [Unknown]
  - Head discomfort [Unknown]
  - Urine abnormality [Unknown]
  - Urinary incontinence [Unknown]
  - Renal impairment [Unknown]
  - Crepitations [Unknown]
  - B-lymphocyte count decreased [Unknown]
  - Dehydration [Unknown]
  - Lip dry [Unknown]
  - Blood pressure increased [Unknown]
  - Abdominal discomfort [Unknown]
  - Lactose intolerance [Unknown]
  - Asthenia [Unknown]
  - Increased viscosity of upper respiratory secretion [Not Recovered/Not Resolved]
  - Swelling face [Unknown]
  - Constipation [Unknown]
  - Cystocele [Unknown]
  - Rectal prolapse [Unknown]
  - Immunoglobulins decreased [Unknown]

NARRATIVE: CASE EVENT DATE: 20230101
